FAERS Safety Report 8916442 (Version 2)
Quarter: 2013Q4

REPORT INFORMATION
  Report Type: Report from Study
  Country: ES (occurrence: ES)
  Receive Date: 20121120
  Receipt Date: 20131212
  Transmission Date: 20140711
  Serious: Yes (Hospitalization)
  Sender: FDA-Public Use
  Company Number: US-ASTELLAS-2012US011205

PATIENT
  Age: 67 Year
  Sex: Female
  Weight: 55 kg

DRUGS (10)
  1. ERLOTINIB TABLET [Suspect]
     Indication: PANCREATIC CARCINOMA
     Dosage: 100 MG, UID/QD
     Route: 048
     Dates: start: 20120821, end: 20120928
  2. GEMCITABINE /01215702/ [Suspect]
     Indication: PANCREATIC CARCINOMA
     Dosage: 841 MG, DAY 1, 8 AND 15 OF 28 DAY CYCLE
     Route: 042
     Dates: start: 20120821
  3. GEMCITABINE /01215702/ [Suspect]
     Dosage: 841 MG, UNK
     Route: 042
     Dates: start: 20120821, end: 20121010
  4. TELMISARTAN [Concomitant]
     Indication: HYPERTENSION
     Dosage: 80/1.25 MG
     Route: 048
     Dates: start: 20110610
  5. RANITIDINA [Concomitant]
     Indication: PRODUCT USED FOR UNKNOWN INDICATION
     Dosage: 300 MG, UID/QD
     Route: 048
     Dates: start: 20120821
  6. METOCLOPRAMIDE [Concomitant]
     Indication: NAUSEA
     Dosage: 20 MG, Q8 HOURS
     Route: 048
     Dates: start: 20120821
  7. ONDANSETRON [Concomitant]
     Indication: NAUSEA
     Dosage: 4 MG, Q12 HOURS
     Route: 048
     Dates: start: 20120821
  8. MORPHINE [Concomitant]
     Indication: PAIN
     Dosage: 1 DF, PRN
     Route: 048
     Dates: start: 20120821
  9. SEGURIL [Concomitant]
     Indication: OEDEMA
     Dosage: 40 MG, PRN
     Route: 048
     Dates: start: 20120902
  10. FENTANYL CITRATE [Concomitant]
     Indication: PRODUCT USED FOR UNKNOWN INDICATION
     Dosage: 12 MG/ 2 DAYS
     Route: 061
     Dates: start: 20120915

REACTIONS (4)
  - Thrombocytopenia [Unknown]
  - Thrombocytopenia [Recovered/Resolved]
  - Pyrexia [Recovered/Resolved]
  - Urinary tract infection [Recovered/Resolved]
